FAERS Safety Report 9858266 (Version 3)
Quarter: 2014Q2

REPORT INFORMATION
  Report Type: Spontaneous
  Country: BR (occurrence: BR)
  Receive Date: 20140131
  Receipt Date: 20140508
  Transmission Date: 20141212
  Serious: Yes (Hospitalization, Other)
  Sender: FDA-Public Use
  Company Number: BR-JNJFOC-20140115796

PATIENT
  Age: 58 Year
  Sex: Male

DRUGS (14)
  1. REMICADE [Suspect]
     Indication: PSORIATIC ARTHROPATHY
     Route: 042
     Dates: start: 20131101
  2. REMICADE [Suspect]
     Indication: PSORIATIC ARTHROPATHY
     Route: 042
     Dates: start: 2013
  3. REMICADE [Suspect]
     Indication: PSORIATIC ARTHROPATHY
     Route: 042
     Dates: start: 2012
  4. REMICADE [Suspect]
     Indication: PSORIASIS
     Route: 042
     Dates: start: 20131101
  5. REMICADE [Suspect]
     Indication: PSORIASIS
     Route: 042
     Dates: start: 2013
  6. REMICADE [Suspect]
     Indication: PSORIASIS
     Route: 042
     Dates: start: 2012
  7. REMICADE [Suspect]
     Indication: ARTHRITIS
     Route: 042
     Dates: start: 2013
  8. REMICADE [Suspect]
     Indication: ARTHRITIS
     Route: 042
     Dates: start: 2012
  9. REMICADE [Suspect]
     Indication: ARTHRITIS
     Route: 042
     Dates: start: 20131101
  10. CAPTOPRIL [Concomitant]
     Route: 065
     Dates: start: 2002
  11. KETOCONAZOLE [Concomitant]
     Route: 065
  12. LEVOTHYROXINE [Concomitant]
     Route: 065
  13. ACETYLSALICYLIC ACID [Concomitant]
     Indication: ANTICOAGULANT THERAPY
     Route: 065
  14. ACETAMINOPHEN [Concomitant]
     Indication: PAIN
     Route: 065

REACTIONS (5)
  - Cerebrovascular accident [Recovering/Resolving]
  - Intestinal haemorrhage [Recovering/Resolving]
  - Gastric haemorrhage [Unknown]
  - Bedridden [Not Recovered/Not Resolved]
  - Cystitis [Recovering/Resolving]
